FAERS Safety Report 18394496 (Version 2)
Quarter: 2020Q4

REPORT INFORMATION
  Report Type: Spontaneous
  Country: SA (occurrence: SA)
  Receive Date: 20201017
  Receipt Date: 20201102
  Transmission Date: 20210114
  Serious: Yes (Other)
  Sender: FDA-Public Use
  Company Number: NVSC2020SA277568

PATIENT
  Sex: Male

DRUGS (1)
  1. EXFORGE [Suspect]
     Active Substance: AMLODIPINE BESYLATE\VALSARTAN
     Indication: HYPERTENSION
     Dosage: 1 DF
     Route: 065
     Dates: start: 20201009

REACTIONS (5)
  - Hepatic steatosis [Unknown]
  - Nephropathy [Unknown]
  - Peripheral swelling [Recovering/Resolving]
  - Hepatomegaly [Unknown]
  - Joint swelling [Recovering/Resolving]
